FAERS Safety Report 6645157-7 (Version None)
Quarter: 2010Q1

REPORT INFORMATION
  Report Type: 
  Country: None (occurrence: None)
  Receive Date: 20100322
  Receipt Date: 20100309
  Transmission Date: 20100710
  Serious: No
  Sender: FDA-Public Use
  Company Number: US-B.I. PHARMACEUTICALS,INC./RIDGEFIELD-2010-BP-02829BP

PATIENT
  Sex: Male

DRUGS (4)
  1. SPIRIVA [Suspect]
     Indication: CHRONIC OBSTRUCTIVE PULMONARY DISEASE
     Dosage: 18 MCG
     Route: 055
     Dates: start: 20100303, end: 20100308
  2. ATIVAN [Concomitant]
     Indication: NERVOUSNESS
     Route: 048
  3. CHEMOTHERAPY [Concomitant]
     Indication: LUNG NEOPLASM MALIGNANT
     Dates: start: 20100101
  4. CHEMOTHERAPY [Concomitant]
     Indication: HEPATIC NEOPLASM MALIGNANT

REACTIONS (1)
  - PRURITUS GENERALISED [None]
